FAERS Safety Report 24663173 (Version 3)
Quarter: 2024Q4

REPORT INFORMATION
  Report Type: Spontaneous
  Country: JP (occurrence: JP)
  Receive Date: 20241126
  Receipt Date: 20241223
  Transmission Date: 20250114
  Serious: Yes (Hospitalization)
  Sender: ABBVIE
  Company Number: JP-ABBVIE-5968276

PATIENT
  Age: 28 Year
  Sex: Male
  Weight: 64 kg

DRUGS (2)
  1. RINVOQ [Suspect]
     Active Substance: UPADACITINIB
     Indication: Dermatitis atopic
     Dosage: FORM STRENGTH: 30 MG
     Route: 048
     Dates: start: 20230731, end: 20240925
  2. TRALOKINUMAB [Concomitant]
     Active Substance: TRALOKINUMAB
     Indication: Product used for unknown indication
     Route: 065

REACTIONS (7)
  - Disseminated tuberculosis [Recovering/Resolving]
  - Pruritus [Not Recovered/Not Resolved]
  - Erythema [Not Recovered/Not Resolved]
  - Pulmonary granuloma [Unknown]
  - Accessory spleen [Unknown]
  - Splenomegaly [Unknown]
  - Therapeutic product effect incomplete [Unknown]

NARRATIVE: CASE EVENT DATE: 20240925
